FAERS Safety Report 5307294-9 (Version None)
Quarter: 2007Q2

REPORT INFORMATION
  Report Type: 
  Country: None (occurrence: None)
  Receive Date: 20070425
  Receipt Date: 20070417
  Transmission Date: 20071010
  Serious: Yes (Hospitalization)
  Sender: FDA-Public Use
  Company Number: JP-ABBOTT-07P-087-0365640-00

PATIENT
  Age: 9 Year
  Sex: Male

DRUGS (5)
  1. CYCLOSPORINE [Suspect]
     Indication: FOCAL GLOMERULOSCLEROSIS
  2. METHYLPREDNISOLONE 16MG TAB [Concomitant]
     Indication: FOCAL GLOMERULOSCLEROSIS
     Dosage: PULSE THERAPY
  3. CYCLOPHOSPHAMIDE [Concomitant]
     Indication: FOCAL GLOMERULOSCLEROSIS
     Dosage: NOT REPORTED
  4. MIZORIBINE [Concomitant]
     Indication: FOCAL GLOMERULOSCLEROSIS
     Dosage: NOT REPORTED
  5. PREDNISOLONE [Concomitant]
     Indication: FOCAL GLOMERULOSCLEROSIS

REACTIONS (7)
  - BODY HEIGHT BELOW NORMAL [None]
  - CATARACT [None]
  - DRUG INEFFECTIVE [None]
  - DRUG RESISTANCE [None]
  - DRUG TOXICITY [None]
  - OBESITY [None]
  - OSTEOPOROSIS [None]
